FAERS Safety Report 4795557-5 (Version None)
Quarter: 2005Q3

REPORT INFORMATION
  Report Type: 
  Country: None (occurrence: None)
  Receive Date: 20050929
  Receipt Date: 20050714
  Transmission Date: 20060218
  Serious: No
  Sender: FDA-Public Use
  Company Number: 05P-163-0305827-00

PATIENT
  Sex: Male
  Weight: 81.6475 kg

DRUGS (9)
  1. HUMIRA [Suspect]
     Indication: RHEUMATOID ARTHRITIS
     Dosage: 40 MG, 1 IN  2 WK, SUBCUTANEOUS; 40 MG, 1 IN 1 WK, SUBCUTANEOUS
     Route: 058
     Dates: start: 20050228, end: 20050701
  2. HUMIRA [Suspect]
     Indication: RHEUMATOID ARTHRITIS
     Dosage: 40 MG, 1 IN  2 WK, SUBCUTANEOUS; 40 MG, 1 IN 1 WK, SUBCUTANEOUS
     Route: 058
     Dates: start: 20050709
  3. TRAMADOL HCL [Concomitant]
  4. ASPIRIN [Concomitant]
  5. IRON [Concomitant]
  6. DOCUSATE SODIUM [Concomitant]
  7. BUPROPION HYDROCHLORIDE [Concomitant]
  8. METAPROLOL [Concomitant]
  9. LEVOTHYROXINE SODIUM [Concomitant]

REACTIONS (1)
  - DRUG INEFFECTIVE [None]
